FAERS Safety Report 19165854 (Version 2)
Quarter: 2021Q2

REPORT INFORMATION
  Report Type: Spontaneous
  Country: US (occurrence: US)
  Receive Date: 20210421
  Receipt Date: 20210609
  Transmission Date: 20210717
  Serious: Yes (Death)
  Sender: FDA-Public Use
  Company Number: US-PFIZER INC-2021432071

PATIENT
  Sex: Female

DRUGS (3)
  1. TETRACAINE. [Suspect]
     Active Substance: TETRACAINE
     Indication: LOCAL ANAESTHESIA
     Dosage: UNK (5 MG OF EACH MILLILITER OF TAC, 5ML)
  2. COCAINE [Suspect]
     Active Substance: COCAINE
     Indication: LOCAL ANAESTHESIA
     Dosage: UNK (118 MG OF EACH MILLILITER OF TAC, 5 ML)
  3. EPINEPHRINE. [Suspect]
     Active Substance: EPINEPHRINE
     Indication: LOCAL ANAESTHESIA
     Dosage: UNK (0.5 MG OF EACH MILLILITER OF TAC, 5 ML)

REACTIONS (3)
  - Accidental exposure to product by child [Fatal]
  - Exposure via mucosa [Fatal]
  - Toxicity to various agents [Fatal]
